FAERS Safety Report 4421997-X (Version None)
Quarter: 2004Q3

REPORT INFORMATION
  Report Type: 
  Country: None (occurrence: None)
  Receive Date: 20040804
  Receipt Date: 20040723
  Transmission Date: 20050211
  Serious: Yes (Hospitalization)
  Sender: FDA-Public Use
  Company Number: 04P-163-0268176-00

PATIENT
  Age: 75 Year
  Sex: Female
  Weight: 65.318 kg

DRUGS (7)
  1. HUMIRA [Suspect]
     Indication: RHEUMATOID ARTHRITIS
     Dosage: 40 MG, 1 IN 2 WK, SUBCUTANEOUS
     Route: 058
     Dates: start: 20040201
  2. CONJUGATED ESTROGEN [Concomitant]
  3. TRIAMTERENE [Concomitant]
  4. LEVOTHYROXINE SODIUM [Concomitant]
  5. MOEXIPRIL HCL [Concomitant]
  6. VICODIN [Concomitant]
  7. ESOMEPRAZOLE [Concomitant]

REACTIONS (2)
  - CALCINOSIS [None]
  - SPINAL DISORDER [None]
